FAERS Safety Report 21905440 (Version 6)
Quarter: 2023Q2

REPORT INFORMATION
  Report Type: Report from Study
  Country: FR (occurrence: FR)
  Receive Date: 20230124
  Receipt Date: 20230518
  Transmission Date: 20230721
  Serious: Yes (Hospitalization, Other)
  Sender: FDA-Public Use
  Company Number: FR-SA-SAC20230119001403

PATIENT
  Age: 59 Year
  Sex: Male
  Weight: 60 kg

DRUGS (5)
  1. ISATUXIMAB [Suspect]
     Active Substance: ISATUXIMAB
     Indication: Plasma cell myeloma
     Dosage: 620 MG (D1,8,15,22)
     Route: 042
     Dates: start: 20230111, end: 20230111
  2. CARFILZOMIB [Suspect]
     Active Substance: CARFILZOMIB
     Indication: Plasma cell myeloma
     Dosage: 34 MG
     Route: 042
     Dates: start: 20230111, end: 20230111
  3. LENALIDOMIDE [Suspect]
     Active Substance: LENALIDOMIDE
     Indication: Plasma cell myeloma
     Dosage: 25 MG (DAY 1-21)
     Route: 048
     Dates: start: 20230111, end: 20230111
  4. DEXAMETHASONE [Suspect]
     Active Substance: DEXAMETHASONE
     Indication: Plasma cell myeloma
     Dosage: 40 MG (DAY 1,8,15,22)
     Route: 048
     Dates: start: 20230111, end: 20230111
  5. BETAMETHASONE [Concomitant]
     Active Substance: BETAMETHASONE
     Indication: Skin lesion

REACTIONS (2)
  - Anxiety disorder [Recovered/Resolved]
  - Bowen^s disease [Recovered/Resolved]

NARRATIVE: CASE EVENT DATE: 20230116
